FAERS Safety Report 5702484-5 (Version None)
Quarter: 2008Q2

REPORT INFORMATION
  Report Type: 
  Country: None (occurrence: None)
  Receive Date: 20080411
  Receipt Date: 20080404
  Transmission Date: 20081010
  Serious: Yes (Congenital Anomaly, Other)
  Sender: FDA-Public Use
  Company Number: GB-BRISTOL-MYERS SQUIBB COMPANY-14140099

PATIENT

DRUGS (4)
  1. ABILIFY [Suspect]
     Route: 064
     Dates: end: 20071201
  2. OLANZAPINE [Suspect]
     Route: 064
     Dates: start: 20070924, end: 20080101
  3. QUETIAPINE FUMARATE [Suspect]
     Route: 064
     Dates: start: 20070724, end: 20070924
  4. RISPERIDONE [Suspect]
     Route: 064
     Dates: end: 20070724

REACTIONS (2)
  - CONGENITAL AORTIC VALVE STENOSIS [None]
  - PREGNANCY [None]
